FAERS Safety Report 21728267 (Version 1)
Quarter: 2022Q4

REPORT INFORMATION
  Report Type: Spontaneous
  Country: US (occurrence: US)
  Receive Date: 20221214
  Receipt Date: 20221214
  Transmission Date: 20230113
  Serious: Yes (Life-Threatening, Hospitalization, Other)
  Sender: FDA-Public Use
  Company Number: US-SEATTLE GENETICS-2022SGN11745

PATIENT
  Sex: Female

DRUGS (4)
  1. ADCETRIS [Suspect]
     Active Substance: BRENTUXIMAB VEDOTIN
     Indication: Hodgkin^s disease
     Dosage: 62 MG
     Route: 065
     Dates: start: 20221121
  2. DOXORUBICIN [Concomitant]
     Active Substance: DOXORUBICIN
     Indication: Hodgkin^s disease
     Route: 065
  3. VINBLASTINE [Concomitant]
     Active Substance: VINBLASTINE
     Indication: Hodgkin^s disease
     Route: 065
  4. DACARBAZINE [Concomitant]
     Active Substance: DACARBAZINE
     Indication: Hodgkin^s disease
     Route: 065

REACTIONS (10)
  - Pneumonitis [Unknown]
  - Leukocytosis [Unknown]
  - Tachycardia [Recovering/Resolving]
  - Acute respiratory distress syndrome [Unknown]
  - Infection [Unknown]
  - Septic shock [Unknown]
  - Pyrexia [Unknown]
  - Sepsis [Unknown]
  - Bacteraemia [Unknown]
  - Malaise [Unknown]

NARRATIVE: CASE EVENT DATE: 20221124
